FAERS Safety Report 8927722 (Version 6)
Quarter: 2017Q4

REPORT INFORMATION
  Report Type: Report from Study
  Country: JP (occurrence: JP)
  Receive Date: 20121127
  Receipt Date: 20171026
  Transmission Date: 20180321
  Serious: Yes (Death, Life-Threatening, Hospitalization, Other)
  Sender: FDA-Public Use
  Company Number: PHHY2012JP106043

PATIENT
  Age: 53 Year
  Sex: Male
  Weight: 51 kg

DRUGS (1)
  1. AFINITOR [Suspect]
     Active Substance: EVEROLIMUS
     Indication: PANCREATIC NEUROENDOCRINE TUMOUR
     Dosage: 10 MG, QD
     Route: 048
     Dates: start: 20121009, end: 20121031

REACTIONS (8)
  - Gamma-glutamyltransferase increased [Unknown]
  - Acute respiratory distress syndrome [Fatal]
  - Hyperamylasaemia [Unknown]
  - Pneumonia [Fatal]
  - Loss of consciousness [Unknown]
  - Blood creatine phosphokinase increased [Unknown]
  - Seizure [Unknown]
  - Aspartate aminotransferase increased [Unknown]

NARRATIVE: CASE EVENT DATE: 20121009
